FAERS Safety Report 7398960-2 (Version None)
Quarter: 2011Q1

REPORT INFORMATION
  Report Type: 
  Country: None (occurrence: None)
  Receive Date: 20110328
  Receipt Date: 20110322
  Transmission Date: 20110831
  Serious: Yes (Death)
  Sender: FDA-Public Use
  Company Number: 201103013

PATIENT
  Sex: Male

DRUGS (19)
  1. LYRICA [Concomitant]
  2. ANDROGEL [Concomitant]
  3. UROXATRAL [Concomitant]
  4. ASPIRIN [Concomitant]
  5. XIAFLEX [Suspect]
     Indication: DUPUYTREN'S CONTRACTURE
     Dosage: 1 IN 1 D, INTRALESIONAL
     Route: 026
     Dates: start: 20110124, end: 20110124
  6. DIOVAN [Concomitant]
  7. PERCOCET [Concomitant]
  8. HUMULIN (INSULIN HUMAN) [Concomitant]
  9. SUCRALFATE [Concomitant]
  10. RITALIN [Concomitant]
  11. CADUET (CADUET) [Concomitant]
  12. GEMFIBROZIL [Concomitant]
  13. MULTI-VITAMIN [Concomitant]
  14. FUROSEMIDE [Concomitant]
  15. OMEPRAZOLE [Concomitant]
  16. BUPROPION HCL [Concomitant]
  17. PLAVIX [Concomitant]
  18. FAMOTIDINE [Concomitant]
  19. SLIDING SCALE INSULIN (INSULIN) [Concomitant]

REACTIONS (1)
  - JOINT RANGE OF MOTION DECREASED [None]
